FAERS Safety Report 9355459 (Version 1)
Quarter: 2013Q2

REPORT INFORMATION
  Report Type: Spontaneous
  Country: BR (occurrence: BR)
  Receive Date: 20130619
  Receipt Date: 20130619
  Transmission Date: 20140414
  Serious: Yes (Other)
  Sender: FDA-Public Use
  Company Number: BR-PFIZER INC-2013182281

PATIENT
  Age: 56 Year
  Sex: Female
  Weight: 50 kg

DRUGS (4)
  1. LYRICA [Suspect]
     Dosage: 75 MG, 2X/DAY
     Route: 048
     Dates: start: 20100617
  2. OMEPRAZOLE [Concomitant]
     Indication: GASTRIC DISORDER
     Dosage: 1 TABLET DAILY
     Dates: start: 2010
  3. RIVOTRIL [Concomitant]
     Indication: RELAXATION THERAPY
     Dosage: 30 DROPS DAILY
     Dates: start: 2010
  4. RIVOTRIL [Concomitant]
     Indication: SLEEP DISORDER

REACTIONS (7)
  - Deafness unilateral [Unknown]
  - Lower limb fracture [Unknown]
  - Patella fracture [Unknown]
  - Scoliosis [Not Recovered/Not Resolved]
  - Spinal pain [Unknown]
  - Pain [Unknown]
  - Arthralgia [Unknown]
